FAERS Safety Report 18787821 (Version 1)
Quarter: 2021Q1

REPORT INFORMATION
  Report Type: Spontaneous
  Country: US (occurrence: US)
  Receive Date: 20210126
  Receipt Date: 20210126
  Transmission Date: 20210419
  Serious: Yes (Other)
  Sender: FDA-Public Use
  Company Number: None

PATIENT
  Age: 76 Year
  Sex: Male
  Weight: 82.9 kg

DRUGS (7)
  1. ACETAMINOPHEN SUPP [Concomitant]
     Dates: start: 20210121
  2. LOSARTAN 100MG ORAL [Concomitant]
     Dates: start: 20210119, end: 20210123
  3. MIRTAZAPINE 7.5 MG ORAL [Concomitant]
     Dates: start: 20210119
  4. MODAFANIL 200MG ORAL [Concomitant]
     Dates: start: 20210121
  5. AMLODIPINE 10MG ORAL [Concomitant]
     Dates: start: 20210117
  6. BAMLANIVIMAB UNDER EMERGENCY USE AUTHORIZATION [Suspect]
     Active Substance: BAMLANIVIMAB
     Indication: COVID-19
     Dosage: ?          OTHER FREQUENCY:ONCE;?
     Route: 040
     Dates: start: 20210122, end: 20210122
  7. ENOXAPARIN 150 MG SQ [Concomitant]
     Dates: start: 20210118, end: 20210124

REACTIONS (7)
  - Tremor [None]
  - Bradycardia [None]
  - Feeling jittery [None]
  - Hypoxia [None]
  - Infusion related reaction [None]
  - Tachycardia [None]
  - Body temperature increased [None]

NARRATIVE: CASE EVENT DATE: 20210122
